FAERS Safety Report 15274988 (Version 6)
Quarter: 2025Q3

REPORT INFORMATION
  Report Type: Spontaneous
  Country: US (occurrence: US)
  Receive Date: 20180814
  Receipt Date: 20250918
  Transmission Date: 20251020
  Serious: No
  Sender: PFIZER
  Company Number: US-PFIZER INC-2018321474

PATIENT
  Age: 65 Year
  Sex: Male

DRUGS (22)
  1. TIKOSYN [Suspect]
     Active Substance: DOFETILIDE
     Indication: Atrial fibrillation
     Dosage: TAKE 1 CAPSULE (500 MCG TOTAL) EVERY 12 HOURS
     Route: 048
     Dates: start: 201704
  2. TIKOSYN [Suspect]
     Active Substance: DOFETILIDE
     Indication: Implantable defibrillator insertion
     Dosage: 0.5 MG, TAKE ONE CAPSULE DAILY
  3. TIKOSYN [Suspect]
     Active Substance: DOFETILIDE
     Indication: Cardiomyopathy
  4. TIKOSYN [Suspect]
     Active Substance: DOFETILIDE
     Indication: Left ventricular failure
  5. TIKOSYN [Suspect]
     Active Substance: DOFETILIDE
     Indication: Chronic left ventricular failure
  6. TIKOSYN [Suspect]
     Active Substance: DOFETILIDE
     Indication: Essential hypertension
  7. TIKOSYN [Suspect]
     Active Substance: DOFETILIDE
     Indication: Left ventricular failure
  8. VITAMIN B COMPLEX [Concomitant]
     Active Substance: CYANOCOBALAMIN\DEXPANTHENOL\NIACINAMIDE\PYRIDOXINE HYDROCHLORIDE\RIBOFLAVIN 5^-PHOSPHATE SODIUM\THIA
     Dosage: 1 DF, DAILY
     Route: 048
  9. COREG [Concomitant]
     Active Substance: CARVEDILOL
     Dosage: 25 MG, 2X/DAY (TAKE 1 TABLET (25 MG TOTAL) BY MOUTH 2 (TWO) TIMES A DAY WITH MEALS)
     Route: 048
  10. INSPRA [Concomitant]
     Active Substance: EPLERENONE
     Dosage: 25 MG, DAILY
     Route: 048
  11. INSPRA [Concomitant]
     Active Substance: EPLERENONE
     Dosage: 50 MG, DAILY
     Route: 048
  12. LASIX [Concomitant]
     Active Substance: FUROSEMIDE
     Dosage: 40 MG, DAILY
     Route: 048
  13. NEURONTIN [Concomitant]
     Active Substance: GABAPENTIN
     Dosage: 300 MG, 3X/DAY
     Route: 048
  14. GLUCOTROL [Concomitant]
     Active Substance: GLIPIZIDE
     Dosage: 5 MG, DAILY
     Route: 048
  15. CHONDROITIN SULFATE A\GLUCOSAMINE [Concomitant]
     Active Substance: CHONDROITIN SULFATE A\GLUCOSAMINE
     Dosage: 2 DF, 1X/DAY (TAKE 2 TABLETS BY MOUTH NIGHTLY)
     Route: 048
  16. BASAGLAR [Concomitant]
     Active Substance: INSULIN GLARGINE
  17. LANTUS [Concomitant]
     Active Substance: INSULIN GLARGINE
     Dosage: 15 IU, 2X/DAY (INJECT 15 UNITS UNDER THE SKIN 2 (TWO) TIMES A DAY)
  18. MAGNESIUM OXIDE [Concomitant]
     Active Substance: MAGNESIUM OXIDE
     Dosage: 400 MG, DAILY
     Route: 048
  19. OMEGA-3 FATTY ACIDS [Concomitant]
     Active Substance: OMEGA-3 FATTY ACIDS
     Dosage: 300 MG, DAILY
     Route: 048
  20. XARELTO [Concomitant]
     Active Substance: RIVAROXABAN
     Dosage: 20 MG, DAILY
     Route: 048
  21. REQUIP [Concomitant]
     Active Substance: ROPINIROLE HYDROCHLORIDE
     Dosage: 1 MG, 1X/DAY [TAKE 1 MG BY MOUTH NIGHTLY]
     Route: 048
  22. ENTRESTO [Concomitant]
     Active Substance: SACUBITRIL\VALSARTAN
     Dosage: 1 DF, 2X/DAY [SACUBITRIL 97 MG-VALSARTAN 103 MG] [EVERY 12HOURS]
     Route: 048

REACTIONS (4)
  - Ejection fraction decreased [Not Recovered/Not Resolved]
  - Obstructive sleep apnoea syndrome [Unknown]
  - Therapeutic product effect incomplete [Unknown]
  - Off label use [Unknown]

NARRATIVE: CASE EVENT DATE: 20170801
